FAERS Safety Report 26138252 (Version 2)
Quarter: 2025Q4

REPORT INFORMATION
  Report Type: Spontaneous
  Country: US (occurrence: US)
  Receive Date: 20251210
  Receipt Date: 20251211
  Transmission Date: 20260117
  Serious: No
  Sender: Kenvue
  Company Number: US-KENVUE-20251110291

PATIENT
  Age: 86 Year
  Sex: Female

DRUGS (2)
  1. ZYRTEC [Suspect]
     Active Substance: CETIRIZINE HYDROCHLORIDE
     Indication: Hypersensitivity
     Dosage: TOOK FOR MANY YEARS AND LONG-TIME USER, 2? TABLETS A DAY
     Route: 065
  2. ZYRTEC [Suspect]
     Active Substance: CETIRIZINE HYDROCHLORIDE
     Indication: Pruritus
     Dosage: 0.5 DOSAGE FORM, HALF TABLET 5 TIMES A DAY)
     Route: 065

REACTIONS (7)
  - Product use in unapproved indication [Unknown]
  - Overdose [Unknown]
  - Wrong technique in product usage process [Unknown]
  - Poor quality product administered [Unknown]
  - Product use complaint [Unknown]
  - Product taste abnormal [Unknown]
  - Product complaint [Unknown]

NARRATIVE: CASE EVENT DATE: 20251125
